FAERS Safety Report 4315772-4 (Version None)
Quarter: 2004Q1

REPORT INFORMATION
  Report Type: 
  Country: None (occurrence: None)
  Receive Date: 20040309
  Receipt Date: 20040224
  Transmission Date: 20041129
  Serious: Yes (Other)
  Sender: FDA-Public Use
  Company Number: USA030740631

PATIENT
  Age: 80 Year
  Sex: Female
  Weight: 51 kg

DRUGS (12)
  1. FORTEO [Suspect]
     Indication: OSTEOPOROSIS
     Dosage: 20 UG/DAY
     Dates: start: 20030616
  2. PLAQUENIL [Concomitant]
  3. HYZAAR [Concomitant]
  4. NEURONTIN [Concomitant]
  5. SEREVENT [Concomitant]
  6. CITRACAL (CALCIUM CITRATE) [Concomitant]
  7. MAGNESIUM [Concomitant]
  8. VITAMIN D [Concomitant]
  9. FOSAMAX [Concomitant]
  10. QUININE [Concomitant]
  11. VITAMIN B COMPLEX CAP [Concomitant]
  12. SYNTHROID [Concomitant]

REACTIONS (23)
  - ANOREXIA [None]
  - ASTHENIA [None]
  - BALANCE DISORDER [None]
  - BLOOD CALCIUM INCREASED [None]
  - BLOOD CREATININE INCREASED [None]
  - BLOOD PRESSURE DIASTOLIC DECREASED [None]
  - CALCIUM IONISED INCREASED [None]
  - CHEST PAIN [None]
  - CONSTIPATION [None]
  - DIARRHOEA [None]
  - DIZZINESS [None]
  - FATIGUE [None]
  - FEELING JITTERY [None]
  - HYPERSENSITIVITY [None]
  - INSOMNIA [None]
  - MUSCLE CRAMP [None]
  - NAUSEA [None]
  - PAIN [None]
  - PHARMACEUTICAL PRODUCT COMPLAINT [None]
  - PSYCHOMOTOR HYPERACTIVITY [None]
  - SPINAL FRACTURE [None]
  - TREMOR [None]
  - WEIGHT DECREASED [None]
